FAERS Safety Report 12908790 (Version 2)
Quarter: 2016Q4

REPORT INFORMATION
  Report Type: Report from Study
  Country: None (occurrence: CO)
  Receive Date: 20161103
  Receipt Date: 20161215
  Transmission Date: 20170207
  Serious: Yes (Hospitalization, Other)
  Sender: FDA-Public Use
  Company Number: CO-ABBVIE-16K-036-1770470-00

PATIENT
  Age: 33 Year
  Sex: Male
  Weight: 60 kg

DRUGS (1)
  1. HUMIRA [Suspect]
     Active Substance: ADALIMUMAB
     Indication: RHEUMATOID ARTHRITIS
     Route: 058
     Dates: start: 20091106, end: 20161014

REACTIONS (4)
  - Anal fistula infection [Not Recovered/Not Resolved]
  - Intestinal tuberculosis [Unknown]
  - Anal fistula infection [Recovered/Resolved]
  - Anal fistula [Not Recovered/Not Resolved]

NARRATIVE: CASE EVENT DATE: 20151101
